FAERS Safety Report 4493034-2 (Version None)
Quarter: 2004Q4

REPORT INFORMATION
  Report Type: 
  Country: None (occurrence: None)
  Receive Date: 20041020
  Receipt Date: 20040726
  Transmission Date: 20050328
  Serious: No
  Sender: FDA-Public Use
  Company Number: 601428

PATIENT
  Age: 42 Year
  Sex: Female
  Weight: 137 kg

DRUGS (19)
  1. ARALAST [Suspect]
     Indication: ALPHA-1 ANTI-TRYPSIN DEFICIENCY
     Dosage: 16524 MG; Q2W; INTRAVENOUS
     Route: 042
     Dates: start: 20040423
  2. ARALAST [Suspect]
  3. ARALAST [Suspect]
  4. ARALAST [Suspect]
  5. ARALAST [Suspect]
  6. ARALAST [Suspect]
  7. ARALAST [Suspect]
  8. ACCUPRIL [Concomitant]
  9. VERAPAMIL [Concomitant]
  10. COMBIVENT [Concomitant]
  11. TYLENOL [Concomitant]
  12. NEXIUM /USA/ [Concomitant]
  13. FLEXERIL [Concomitant]
  14. PROZAC [Concomitant]
  15. VICODIN [Concomitant]
  16. DARVOCET-N 100 [Concomitant]
  17. SYNTHROID [Concomitant]
  18. ADVAIR [Concomitant]
  19. PROPRANOLOL [Concomitant]

REACTIONS (4)
  - CONDITION AGGRAVATED [None]
  - HEADACHE [None]
  - INFUSION RELATED REACTION [None]
  - MIGRAINE [None]
